FAERS Safety Report 9399369 (Version 4)
Quarter: 2013Q4

REPORT INFORMATION
  Report Type: Spontaneous
  Country: US (occurrence: US)
  Receive Date: 20130715
  Receipt Date: 20131030
  Transmission Date: 20140711
  Serious: No
  Sender: FDA-Public Use
  Company Number: US-PFIZER INC-2013204752

PATIENT
  Age: 65 Year
  Sex: Female

DRUGS (17)
  1. SUTENT [Suspect]
     Indication: RENAL CELL CARCINOMA
     Dosage: 50 MG, UNK
     Dates: start: 20130117
  2. ASPIRIN (E.C.) [Concomitant]
     Dosage: UNK
  3. INSULIN INJECTION [Concomitant]
     Dosage: UNK
  4. CALCIUM WITH VITAMIN D [Concomitant]
     Dosage: UNK
  5. MAGNESIUM OXIDE [Concomitant]
     Dosage: UNK
  6. CEPHALEXIN [Concomitant]
     Dosage: UNK
  7. PREDNISONE [Concomitant]
     Dosage: UNK
  8. CRESTOR [Concomitant]
     Dosage: UNK
  9. VITAMIN D [Concomitant]
     Dosage: UNK
  10. DIAZEPAM [Concomitant]
     Dosage: UNK
  11. DOXAZOSIN MESILATE [Concomitant]
     Dosage: UNK
  12. ALENDRONATE SODIUM [Concomitant]
     Dosage: UNK
  13. ALLOPURINOL [Concomitant]
     Dosage: UNK
  14. AMLODIPINE BESILATE [Concomitant]
     Dosage: UNK
  15. CALCITRIOL [Concomitant]
     Dosage: UNK
  16. DIOVAN [Concomitant]
     Dosage: UNK
  17. LEVOTHYROXINE SODIUM [Concomitant]
     Dosage: UNK

REACTIONS (3)
  - Palmar-plantar erythrodysaesthesia syndrome [Unknown]
  - Myalgia [Unknown]
  - Pain in extremity [Unknown]
